FAERS Safety Report 9511733 (Version 1)
Quarter: 2013Q3

REPORT INFORMATION
  Report Type: Spontaneous
  Country: FR (occurrence: None)
  Receive Date: 20130906
  Receipt Date: 20130906
  Transmission Date: 20140515
  Serious: Yes (Hospitalization)
  Sender: FDA-Public Use
  Company Number: 7234549

PATIENT
  Age: 71 Year
  Sex: Female

DRUGS (11)
  1. METFORMIN [Suspect]
     Indication: PRODUCT USED FOR UNKNOWN INDICATION
     Dosage: 1400 MG (700 MG, 2 IN 1 D), ORAL
     Route: 048
     Dates: start: 20120802
  2. LEVOTHYROX (LEVOTHYROXINE SODIUM) INFUSION [Suspect]
     Indication: PRODUCT USED FOR UNKNOWN INDICATION
     Route: 048
     Dates: start: 20120802
  3. COVERSYL [Suspect]
     Indication: PRODUCT USED FOR UNKNOWN INDICATION
     Route: 048
     Dates: start: 20120802
  4. PROZAC (FLUOXETINE HYDROCHLORIDE) [Suspect]
     Indication: PRODUCT USED FOR UNKNOWN INDICATION
     Route: 048
     Dates: start: 20120802
  5. INEXIUM /01479302/ (ESOMEPRAZOLE MAGNESIUM) (ESOMEPRAZOLE MAGNESIUM) [Suspect]
     Indication: PRODUCT USED FOR UNKNOWN INDICATION
     Route: 048
     Dates: start: 20120802
  6. PLAVIX [Suspect]
     Indication: PRODUCT USED FOR UNKNOWN INDICATION
     Route: 048
     Dates: start: 20120802
  7. MONOALGIC LP (200 MG, GASTRO-RESISTANT TABLET) (TRAMADOL) [Suspect]
     Indication: PRODUCT USED FOR UNKNOWN INDICATION
     Route: 048
     Dates: start: 20120802
  8. TAHOR (ATORVASTATIN CALCIUM) [Suspect]
     Indication: PRODUCT USED FOR UNKNOWN INDICATION
     Route: 048
     Dates: start: 20120802
  9. MONO-TILDIEM (DILTIAZEM HYDROCHLORIDE) (300 MG, GASTRO-RESISTANT CAPSULE) [Suspect]
     Indication: PRODUCT USED FOR UNKNOWN INDICATION
     Route: 048
     Dates: start: 20120802
  10. JANUVIA (SITAGLIPTIN PHOSPHATE) [Suspect]
     Indication: PRODUCT USED FOR UNKNOWN INDICATION
     Route: 048
     Dates: start: 20120802
  11. CORTANCYL (PREDNISONE) (5 MG) [Suspect]
     Indication: PRODUCT USED FOR UNKNOWN INDICATION
     Dosage: 4 DF (4 DF, MORNING), ORAL
     Dates: start: 20120802

REACTIONS (3)
  - Pemphigoid [None]
  - Pruritus [None]
  - Erythema [None]
